FAERS Safety Report 10082177 (Version 4)
Quarter: 2016Q1

REPORT INFORMATION
  Report Type: Report from Study
  Country: US (occurrence: US)
  Receive Date: 20140416
  Receipt Date: 20160307
  Transmission Date: 20160525
  Serious: Yes (Disabling, Other)
  Sender: FDA-Public Use
  Company Number: US-SA-2013SA111364

PATIENT
  Sex: Male

DRUGS (1)
  1. AUBAGIO [Suspect]
     Active Substance: TERIFLUNOMIDE
     Indication: MULTIPLE SCLEROSIS
     Route: 048
     Dates: start: 20131009

REACTIONS (7)
  - Nausea [Recovering/Resolving]
  - Central nervous system lesion [Unknown]
  - Optic neuritis [Recovering/Resolving]
  - Hypoaesthesia [Not Recovered/Not Resolved]
  - Balance disorder [Unknown]
  - Unevaluable event [Unknown]
  - Decreased appetite [Unknown]
